FAERS Safety Report 8040715-X (Version None)
Quarter: 2012Q1

REPORT INFORMATION
  Report Type: 
  Country: None (occurrence: None)
  Receive Date: 20120111
  Receipt Date: 20111230
  Transmission Date: 20120608
  Serious: No
  Sender: FDA-Public Use
  Company Number: US-AMGEN-USASP2011069793

PATIENT
  Age: 52 Year
  Sex: Female

DRUGS (1)
  1. ENBREL [Suspect]
     Indication: RHEUMATOID ARTHRITIS
     Dosage: 25 MG, 2 TIMES/WK
     Dates: start: 20000501

REACTIONS (5)
  - CREPITATIONS [None]
  - FUNGAL INFECTION [None]
  - ARTHROPOD BITE [None]
  - RHEUMATOID ARTHRITIS [None]
  - STRESS [None]
